FAERS Safety Report 7217795-4 (Version None)
Quarter: 2011Q1

REPORT INFORMATION
  Report Type: 
  Country: None (occurrence: None)
  Receive Date: 20110110
  Receipt Date: 20110105
  Transmission Date: 20110831
  Serious: Yes (Hospitalization, Other)
  Sender: FDA-Public Use
  Company Number: FR-JNJFOC-20110100741

PATIENT
  Age: 45 Year
  Sex: Male

DRUGS (5)
  1. LOVENOX [Suspect]
     Indication: THROMBOSIS PROPHYLAXIS
     Route: 058
  2. ROCEPHIN [Suspect]
     Indication: CHRONIC OBSTRUCTIVE PULMONARY DISEASE
     Route: 065
  3. SERETIDE [Concomitant]
     Route: 065
  4. TAVANIC [Suspect]
     Indication: CHRONIC OBSTRUCTIVE PULMONARY DISEASE
     Route: 065
  5. SPIRIVA [Concomitant]
     Route: 065

REACTIONS (2)
  - EOSINOPHILIA [None]
  - THROMBOCYTOSIS [None]
